FAERS Safety Report 4532260-0 (Version None)
Quarter: 2004Q4

REPORT INFORMATION
  Report Type: 
  Country: None (occurrence: None)
  Receive Date: 20041220
  Receipt Date: 20040903
  Transmission Date: 20050328
  Serious: Yes (Hospitalization)
  Sender: FDA-Public Use
  Company Number: CA-ABBOTT-04P-028-0272719-00

PATIENT
  Sex: Female

DRUGS (39)
  1. EPIVAL TABLETS [Suspect]
     Indication: DEPRESSION
     Route: 048
     Dates: start: 20040217, end: 20040821
  2. EPIVAL TABLETS [Suspect]
     Route: 048
     Dates: start: 20040217, end: 20040821
  3. EPIVAL TABLETS [Suspect]
     Dates: start: 20040614
  4. RITONAVIR SOFT GELATIN CAPSULES [Suspect]
     Indication: HIV INFECTION
     Route: 048
     Dates: start: 20021211, end: 20040821
  5. RITONAVIR SOFT GELATIN CAPSULES [Suspect]
     Route: 048
     Dates: start: 20020626, end: 20021211
  6. TIPRANAVIR [Suspect]
     Indication: HIV INFECTION
     Route: 048
     Dates: start: 20020626, end: 20040821
  7. PROCYCLIDINE HYDROCHLORIDE 2MG TAB [Suspect]
     Indication: PROPHYLAXIS
     Route: 048
     Dates: start: 20040322, end: 20040821
  8. OLANZAPINE [Suspect]
     Indication: PSYCHOTIC DISORDER
     Route: 048
     Dates: start: 20030214, end: 20040821
  9. OLANZAPINE [Suspect]
     Route: 048
     Dates: start: 20030214, end: 20040821
  10. RISPERIDONE [Suspect]
     Indication: PSYCHOTIC DISORDER
     Route: 048
     Dates: start: 20040706, end: 20040821
  11. TRAZODONE HCL [Suspect]
     Indication: DEPRESSION
     Route: 048
     Dates: start: 20040614, end: 20040728
  12. TRAZODONE HCL [Suspect]
     Route: 048
     Dates: end: 20040821
  13. QUETIAPINE [Suspect]
     Indication: PSYCHOTIC DISORDER
     Route: 048
     Dates: start: 20040729, end: 20040821
  14. CLONAZEPAM [Suspect]
     Indication: HYPOMANIA
     Route: 048
     Dates: end: 20040712
  15. CARBAMAZEPINE [Suspect]
     Indication: HYPOMANIA
     Dates: start: 20040707, end: 20040716
  16. PARACETAMOL [Suspect]
     Indication: PAIN IN EXTREMITY
     Route: 048
     Dates: start: 20021211, end: 20040914
  17. PARACETAMOL [Suspect]
     Indication: HEADACHE
  18. LAMIVUDINE [Concomitant]
     Indication: HIV INFECTION
     Route: 048
     Dates: start: 20040419, end: 20040821
  19. LAMIVUDINE [Concomitant]
     Dates: start: 20040910, end: 20040914
  20. ABACAVIR [Concomitant]
     Indication: HIV INFECTION
     Route: 048
     Dates: start: 20040419, end: 20040821
  21. ABACAVIR [Concomitant]
     Dates: start: 20040910, end: 20040914
  22. ATOVAQUONE [Concomitant]
     Indication: INFECTION PROPHYLAXIS
     Route: 048
     Dates: start: 20040407, end: 20040821
  23. ATOVAQUONE [Concomitant]
     Dates: start: 20040825, end: 20040912
  24. CALCIUM CARBONATE [Concomitant]
     Indication: DIARRHOEA
     Route: 048
     Dates: start: 20010216, end: 20040912
  25. MAGIC MOUTHWASH [Concomitant]
     Indication: ORAL CANDIDIASIS
     Dates: start: 20040220, end: 20040912
  26. NYSTATIN [Concomitant]
     Indication: ORAL CANDIDIASIS
     Route: 048
     Dates: start: 19921201, end: 20040912
  27. MEGAVIM [Concomitant]
     Indication: VITAMIN SUPPLEMENTATION
     Route: 048
     Dates: end: 20040821
  28. ENFUVIRTIDE (T-20) [Concomitant]
     Indication: HIV INFECTION
     Route: 058
     Dates: start: 20040419
  29. ENFUVIRTIDE (T-20) [Concomitant]
     Dates: start: 20040911, end: 20040914
  30. BISACODYL [Concomitant]
     Indication: CONSTIPATION
     Dates: end: 20040914
  31. BISACODYL [Concomitant]
  32. CHORAL HYDRATE [Concomitant]
     Indication: DRUG USE FOR UNKNOWN INDICATION
  33. LACTULOSE [Concomitant]
     Indication: CONSTIPATION
     Dates: start: 20040217, end: 20040914
  34. IMODIUM [Concomitant]
     Indication: DIARRHOEA
     Dates: start: 20000823, end: 20040914
  35. DIPHENHYDRAMINE HYDROCHLORIDE [Concomitant]
     Indication: NAUSEA
     Route: 042
  36. DIPHENHYDRAMINE HYDROCHLORIDE [Concomitant]
     Route: 048
  37. DIPHENHYDRAMINE HYDROCHLORIDE [Concomitant]
     Route: 030
  38. KALETRA [Concomitant]
     Indication: HIV INFECTION
     Dates: start: 20040911, end: 20040914
  39. LITHIUM [Concomitant]
     Indication: HYPOMANIA
     Dates: start: 20040910, end: 20040914

REACTIONS (12)
  - BLOOD BILIRUBIN INCREASED [None]
  - CHOLELITHIASIS [None]
  - CONDITION AGGRAVATED [None]
  - HEPATIC ENZYME INCREASED [None]
  - HEPATOTOXICITY [None]
  - HYPOMANIA [None]
  - JAUNDICE CHOLESTATIC [None]
  - NAUSEA [None]
  - PNEUMONIA [None]
  - PSYCHOTIC DISORDER [None]
  - SCHIZOPHRENIA [None]
  - VOMITING [None]
